FAERS Safety Report 9114455 (Version 1)
Quarter: 2013Q1

REPORT INFORMATION
  Report Type: Spontaneous
  Country: HR (occurrence: HR)
  Receive Date: 20130208
  Receipt Date: 20130208
  Transmission Date: 20140127
  Serious: Yes (Other)
  Sender: FDA-Public Use
  Company Number: HR-009507513-1302HRV002176

PATIENT
  Age: 2 Year
  Sex: Female
  Weight: 14 kg

DRUGS (2)
  1. SINGULAIR [Suspect]
     Indication: BRONCHIAL OBSTRUCTION
     Dosage: 4 MG, QD
     Route: 048
     Dates: start: 20120420, end: 20121230
  2. SINGULAIR [Suspect]
     Indication: ASTHMA

REACTIONS (3)
  - Sleep disorder [Recovered/Resolved]
  - Aggression [Recovered/Resolved]
  - Restlessness [Recovered/Resolved]
